FAERS Safety Report 9069939 (Version 1)
Quarter: 2013Q1

REPORT INFORMATION
  Report Type: Report from Study
  Country: US (occurrence: US)
  Receive Date: 20130131
  Receipt Date: 20130131
  Transmission Date: 20140127
  Serious: No
  Sender: FDA-Public Use
  Company Number: US-ABBOTT-12P-163-1005942-00

PATIENT
  Age: 63 Year
  Sex: Male

DRUGS (5)
  1. HUMIRA [Suspect]
     Indication: PSORIASIS
     Dates: start: 20121106
  2. METFORMIN [Concomitant]
     Indication: DIABETES MELLITUS
     Dosage: UP TO 3 A DAY
  3. AMARYL [Concomitant]
     Indication: DIABETES MELLITUS
  4. BESYLATE [Concomitant]
     Indication: HYPERTENSION
  5. BENAZEPRIL [Concomitant]
     Indication: HYPERTENSION

REACTIONS (7)
  - Device malfunction [Unknown]
  - Wrong technique in drug usage process [Unknown]
  - Injection site swelling [Recovered/Resolved]
  - Injection site bruising [Unknown]
  - Incorrect dose administered [Unknown]
  - Device malfunction [Unknown]
  - Injection site haemorrhage [Unknown]
